FAERS Safety Report 6826255-1 (Version None)
Quarter: 2010Q3

REPORT INFORMATION
  Report Type: 
  Country: None (occurrence: None)
  Receive Date: 20100709
  Receipt Date: 20100628
  Transmission Date: 20110219
  Serious: Yes (Hospitalization, Other)
  Sender: FDA-Public Use
  Company Number: PHHY2010CH42062

PATIENT
  Age: 61 Year
  Sex: Male

DRUGS (3)
  1. CYCLOSPORINE [Suspect]
     Indication: LUNG TRANSPLANT
  2. MYCOPHENOLATE MOFETIL [Suspect]
     Indication: LUNG TRANSPLANT
     Dosage: 2 G/DAY
  3. PREDNISOLONE [Suspect]
     Indication: LUNG TRANSPLANT
     Dosage: 0.1 MG/KG/DAY

REACTIONS (7)
  - ANAEMIA [None]
  - FOLLICULITIS [None]
  - HYPERPLASIA [None]
  - LYMPHOPENIA [None]
  - MOLLUSCUM CONTAGIOSUM [None]
  - PHOTOPHERESIS [None]
  - TRANSPLANT REJECTION [None]
